FAERS Safety Report 8143792-0 (Version None)
Quarter: 2012Q1

REPORT INFORMATION
  Report Type: 
  Country: None (occurrence: None)
  Receive Date: 20120217
  Receipt Date: 20120206
  Transmission Date: 20120608
  Serious: Yes (Death)
  Sender: FDA-Public Use
  Company Number: US-MYLANLABS-2012S1002845

PATIENT
  Age: 56 Year
  Sex: Male
  Weight: 102.51 kg

DRUGS (6)
  1. FENTANYL-100 [Suspect]
     Route: 062
  2. CARISOPRODOL [Concomitant]
  3. ACETYLSALICYLIC ACID W/OXYCODONE /00554201/ [Concomitant]
     Dosage: 1 TO 2 TABLETS Q4H
  4. ATENOLOL [Concomitant]
  5. SOMA [Concomitant]
     Dosage: Q4-6 HOURS
  6. ALPRAZOLAM [Concomitant]
     Dosage: .5 MG TO 1MG TID

REACTIONS (1)
  - TOXICITY TO VARIOUS AGENTS [None]
